FAERS Safety Report 6978453-4 (Version None)
Quarter: 2010Q3

REPORT INFORMATION
  Report Type: 
  Country: None (occurrence: None)
  Receive Date: 20100913
  Receipt Date: 20100831
  Transmission Date: 20110219
  Serious: Yes (Hospitalization, Other)
  Sender: FDA-Public Use
  Company Number: IR-PAR PHARMACEUTICAL, INC-2010SCPR002065

PATIENT

DRUGS (2)
  1. PROPRANOLOL HYDROCHLORIDE [Suspect]
     Indication: PRODUCT USED FOR UNKNOWN INDICATION
     Dosage: 40 MG DAILY
     Route: 048
  2. PROPRANOLOL HYDROCHLORIDE [Suspect]
     Dosage: 90 TABLETS OF 40 MG PROPRANOLOL TABLETS
     Route: 048

REACTIONS (10)
  - BRADYCARDIA [None]
  - CYANOSIS [None]
  - DRUG TOXICITY [None]
  - JOINT DISLOCATION [None]
  - METABOLIC ACIDOSIS [None]
  - OVERDOSE [None]
  - PERIPHERAL COLDNESS [None]
  - PULSE PRESSURE DECREASED [None]
  - SHOCK [None]
  - SOMNOLENCE [None]
